FAERS Safety Report 7742206-X (Version None)
Quarter: 2011Q3

REPORT INFORMATION
  Report Type: 
  Country: None (occurrence: None)
  Receive Date: 20110907
  Receipt Date: 20110907
  Transmission Date: 20111222
  Serious: No
  Sender: FDA-Public Use
  Company Number: None

PATIENT
  Sex: Female

DRUGS (1)
  1. SIMPONI [Suspect]
     Indication: PSORIASIS
     Dosage: 50MG MONTHLY SUBQ
     Route: 058
     Dates: start: 20110607, end: 20110830

REACTIONS (7)
  - DECREASED APPETITE [None]
  - STRESS [None]
  - PALPITATIONS [None]
  - COUGH [None]
  - SLEEP DISORDER [None]
  - DEPRESSION [None]
  - NERVOUSNESS [None]
